FAERS Safety Report 7462611-9 (Version None)
Quarter: 2011Q2

REPORT INFORMATION
  Report Type: 
  Country: None (occurrence: None)
  Receive Date: 20110506
  Receipt Date: 20110421
  Transmission Date: 20111010
  Serious: Yes (Hospitalization, Other)
  Sender: FDA-Public Use
  Company Number: US-BAYER-2010-003005

PATIENT
  Age: 26 Year
  Sex: Female
  Weight: 122.45 kg

DRUGS (3)
  1. YASMIN [Suspect]
     Indication: PRODUCT USED FOR UNKNOWN INDICATION
     Dosage: UNK
     Route: 048
     Dates: start: 20040801, end: 20071201
  2. DROSPIRENONE AND ETHINYL ESTRADIOL [Suspect]
     Indication: MENSTRUATION IRREGULAR
     Dosage: UNK
     Dates: start: 20071201, end: 20090101
  3. IMITREX [Concomitant]
     Indication: MIGRAINE
     Dosage: UNK
     Dates: start: 20060101

REACTIONS (4)
  - PAIN [None]
  - PULMONARY EMBOLISM [None]
  - THROMBOSIS [None]
  - DEEP VEIN THROMBOSIS [None]
